FAERS Safety Report 8162184-1 (Version None)
Quarter: 2012Q1

REPORT INFORMATION
  Report Type: 
  Country: None (occurrence: None)
  Receive Date: 20120224
  Receipt Date: 20110928
  Transmission Date: 20120608
  Serious: No
  Sender: FDA-Public Use
  Company Number: US-BRISTOL-MYERS SQUIBB COMPANY-16107898

PATIENT
  Age: 76 Year
  Sex: Female
  Weight: 84 kg

DRUGS (2)
  1. GLUCOPHAGE XR [Suspect]
     Dosage: PRESCRIPTION # 249698
  2. METFORMIN HCL [Suspect]

REACTIONS (1)
  - DIARRHOEA [None]
